FAERS Safety Report 6097753-6 (Version None)
Quarter: 2009Q1

REPORT INFORMATION
  Report Type: 
  Country: None (occurrence: None)
  Receive Date: 20090227
  Receipt Date: 20090218
  Transmission Date: 20090719
  Serious: Yes (Hospitalization)
  Sender: FDA-Public Use
  Company Number: FR-WYE-H08323509

PATIENT
  Age: 82 Year
  Sex: Female

DRUGS (12)
  1. CORDARONE [Suspect]
     Dosage: 200 MG TABLET (DOSE AND REGIMEN UNSPECIFIED)
     Route: 048
     Dates: end: 20080701
  2. ARIMIDEX [Concomitant]
     Dosage: UNKNOWN
     Route: 048
  3. DAFALGAN [Concomitant]
  4. DIFFU K [Concomitant]
     Dosage: UNKNOWN
     Route: 048
  5. VOLTAREN [Concomitant]
     Dosage: UNKNOWN
     Route: 061
  6. IKOREL [Concomitant]
     Dosage: UNKNOWN
     Route: 048
  7. PRAZEPAM [Concomitant]
     Dosage: UNKNOWN
     Route: 048
  8. PREVISCAN [Concomitant]
     Dosage: UNKNOWN
     Route: 048
     Dates: end: 20080701
  9. TAHOR [Concomitant]
     Dosage: UNKNOWN
     Route: 048
  10. TRIATEC [Concomitant]
     Dosage: UNKNOWN
     Route: 048
  11. CARDENSIEL [Interacting]
     Dosage: UNKNOWN
     Route: 048
     Dates: end: 20080701
  12. ESIDRIX [Concomitant]
     Dosage: UNKNOWN
     Route: 048

REACTIONS (3)
  - CARDIAC FAILURE [None]
  - DRUG INTERACTION [None]
  - SINUS BRADYCARDIA [None]
